FAERS Safety Report 4838267-8 (Version None)
Quarter: 2005Q4

REPORT INFORMATION
  Report Type: 
  Country: None (occurrence: None)
  Receive Date: 20051123
  Receipt Date: 20051111
  Transmission Date: 20060501
  Serious: Yes (Hospitalization)
  Sender: FDA-Public Use
  Company Number: 2005102322

PATIENT
  Age: 61 Year
  Sex: Female

DRUGS (8)
  1. LIPITOR [Suspect]
     Indication: HYPERCHOLESTEROLAEMIA
     Dosage: 5 MG (5 MG, 1 IN 1 D), ORAL
     Route: 048
     Dates: start: 20050128, end: 20050609
  2. PROHEPARUM (CHOLINE BITARTRATE, CYANOCOBALAMIN, CYSTEINE, INOSITOL, LI [Concomitant]
  3. URSODIOL [Concomitant]
  4. CETAPRIL (ALACEPRIL) [Concomitant]
  5. MIKELAN (CARTEOLOL HYDROCHLORIDE) [Concomitant]
  6. DILTIAZEM HYDROCHLORIDE [Concomitant]
  7. MARZULENE S (LEVOGLUTAMIDE, SODIUM GUALENATE) [Concomitant]
  8. LUDIOMIL [Concomitant]

REACTIONS (2)
  - CHOLELITHIASIS [None]
  - HEPATIC STEATOSIS [None]
